FAERS Safety Report 8906085 (Version 2)
Quarter: 2013Q1

REPORT INFORMATION
  Report Type: Spontaneous
  Country: US (occurrence: US)
  Receive Date: 20121112
  Receipt Date: 20130218
  Transmission Date: 20140127
  Serious: No
  Sender: FDA-Public Use
  Company Number: US-PFIZER INC-2012278625

PATIENT
  Sex: Female

DRUGS (2)
  1. ZOLOFT [Suspect]
  2. SERTRALINE HCL [Suspect]
     Dosage: UNK

REACTIONS (1)
  - Galactostasis [Unknown]
